FAERS Safety Report 6754956-2 (Version None)
Quarter: 2010Q2

REPORT INFORMATION
  Report Type: 
  Country: None (occurrence: None)
  Receive Date: 20100602
  Receipt Date: 20100518
  Transmission Date: 20101027
  Serious: Yes (Other)
  Sender: FDA-Public Use
  Company Number: DE-001986

PATIENT
  Sex: Male
  Weight: 26.9 kg

DRUGS (1)
  1. ZOMACTON (ZOMACTON) 10 MG (NOT SPECIFIED) [Suspect]
     Indication: GROWTH HORMONE DEFICIENCY
     Dosage: SUBCUTANEOUS
     Route: 058
     Dates: start: 20100129, end: 20100428

REACTIONS (2)
  - MEDULLOBLASTOMA RECURRENT [None]
  - NECK PAIN [None]
